FAERS Safety Report 8522341-9 (Version None)
Quarter: 2012Q3

REPORT INFORMATION
  Report Type: 
  Country: None (occurrence: None)
  Receive Date: 20120719
  Receipt Date: 20120716
  Transmission Date: 20120928
  Serious: Yes (Other)
  Sender: FDA-Public Use
  Company Number: PHHY2012US061365

PATIENT
  Age: 78 Year
  Sex: Female

DRUGS (3)
  1. ACETYLSALICYLIC ACID SRT [Suspect]
     Route: 048
  2. TRIAMINIC SRT [Concomitant]
     Indication: COUGH
  3. TRIAMINIC SRT [Concomitant]
     Indication: NASOPHARYNGITIS

REACTIONS (1)
  - LOSS OF CONSCIOUSNESS [None]
